FAERS Safety Report 17903552 (Version 3)
Quarter: 2020Q4

REPORT INFORMATION
  Report Type: Report from Study
  Country: HU (occurrence: HU)
  Receive Date: 20200616
  Receipt Date: 20201209
  Transmission Date: 20210113
  Serious: Yes (Hospitalization, Other)
  Sender: FDA-Public Use
  Company Number: NVSC2020HU166557

PATIENT
  Age: 0 Year
  Sex: Male

DRUGS (2)
  1. GILENYA [Suspect]
     Active Substance: FINGOLIMOD HYDROCHLORIDE
     Indication: FOETAL EXPOSURE DURING PREGNANCY
     Dosage: UNK
     Route: 064
  2. AMOXICILLIN, CLAVULANIC ACID [Suspect]
     Active Substance: AMOXICILLIN\CLAVULANIC ACID
     Indication: PNEUMONIA ASPIRATION
     Dosage: UNK
     Route: 042

REACTIONS (28)
  - Cough [Unknown]
  - Apnoea [Unknown]
  - Pneumonia aspiration [Recovered/Resolved]
  - Nasopharyngitis [Unknown]
  - Lymphocytosis [Unknown]
  - Reflexes abnormal [Unknown]
  - Skin discolouration [Unknown]
  - Rhinorrhoea [Unknown]
  - Blood creatinine [Unknown]
  - Choking [Unknown]
  - Cephalhaematoma [Recovering/Resolving]
  - Pneumonia [Recovered/Resolved]
  - Crying [Unknown]
  - Eosinophil count [Unknown]
  - Platelet count [Unknown]
  - Eye discharge [Unknown]
  - Foetal exposure during pregnancy [Unknown]
  - Hypotonia [Unknown]
  - Dyspnoea [Unknown]
  - Neutrophil count [Unknown]
  - Red blood cell count [Unknown]
  - Vomiting [Unknown]
  - Oropharyngeal discomfort [Unknown]
  - Lymphocyte count [Unknown]
  - Basophil count [Unknown]
  - Secretion discharge [Unknown]
  - Malaise [Recovered/Resolved]
  - Staring [Recovered/Resolved]

NARRATIVE: CASE EVENT DATE: 2020
